FAERS Safety Report 24644050 (Version 1)
Quarter: 2024Q4

REPORT INFORMATION
  Report Type: Spontaneous
  Country: CN (occurrence: CN)
  Receive Date: 20241120
  Receipt Date: 20241120
  Transmission Date: 20250115
  Serious: Yes (Other)
  Sender: MERCK
  Company Number: CN-BAYER-2024A163301

PATIENT
  Age: 50 Year
  Sex: Male

DRUGS (4)
  1. VERICIGUAT [Suspect]
     Active Substance: VERICIGUAT
     Dosage: 2.5 MG, QD
     Dates: start: 20241024, end: 20241025
  2. TORSEMIDE [Suspect]
     Active Substance: TORSEMIDE
     Indication: Hypertension
     Dosage: 10 MG, QD
     Dates: start: 20241022, end: 20241025
  3. TORSEMIDE [Suspect]
     Active Substance: TORSEMIDE
     Indication: Cardiac failure
  4. DAPAGLIFLOZIN [Suspect]
     Active Substance: DAPAGLIFLOZIN
     Indication: Hypertension
     Dosage: 10 MG, QD
     Route: 048
     Dates: start: 20241024, end: 20241025

REACTIONS (1)
  - Acute kidney injury [Recovering/Resolving]

NARRATIVE: CASE EVENT DATE: 20241025
